FAERS Safety Report 7511222-5 (Version None)
Quarter: 2011Q2

REPORT INFORMATION
  Report Type: 
  Country: None (occurrence: None)
  Receive Date: 20110531
  Receipt Date: 20110518
  Transmission Date: 20111010
  Serious: Yes (Other)
  Sender: FDA-Public Use
  Company Number: FR-JNJFOC-20101108749

PATIENT
  Age: 85 Year
  Sex: Male

DRUGS (7)
  1. MEMANTINE HYDROCHLORIDE [Suspect]
     Indication: DEMENTIA ALZHEIMER'S TYPE
     Route: 048
     Dates: start: 20091201
  2. LORAZEPAM [Concomitant]
     Indication: ABNORMAL BEHAVIOUR
     Route: 048
     Dates: start: 20091201
  3. ATENOLOL [Concomitant]
     Indication: INFARCTION
     Route: 048
     Dates: start: 19900101
  4. PRAVASTATIN [Concomitant]
     Indication: INFARCTION
     Route: 048
     Dates: start: 19880101
  5. GALANTAMINE HYDROBROMIDE [Suspect]
     Indication: DEMENTIA ALZHEIMER'S TYPE
     Route: 048
     Dates: start: 20080101
  6. DEPAMIDE [Suspect]
     Indication: ABNORMAL BEHAVIOUR
     Route: 048
     Dates: start: 20100201
  7. ASPEGIC 325 [Concomitant]
     Indication: INFARCTION
     Route: 048
     Dates: start: 19880101

REACTIONS (6)
  - PHLEBITIS [None]
  - PERFORMANCE STATUS DECREASED [None]
  - MOBILITY DECREASED [None]
  - SEDATION [None]
  - OEDEMA [None]
  - VENOUS THROMBOSIS [None]
